FAERS Safety Report 7578580-7 (Version None)
Quarter: 2011Q2

REPORT INFORMATION
  Report Type: 
  Country: None (occurrence: None)
  Receive Date: 20110628
  Receipt Date: 20110624
  Transmission Date: 20111010
  Serious: Yes (Death)
  Sender: FDA-Public Use
  Company Number: US-PFIZER INC-2011105490

PATIENT
  Age: 28 Year
  Sex: Male
  Weight: 104 kg

DRUGS (5)
  1. HEROIN [Suspect]
     Dosage: UNK
  2. FENTANYL [Suspect]
     Dosage: UNK
  3. ALPRAZOLAM [Suspect]
     Dosage: UNK
  4. DEXTROMETHORPHAN HYDROBROMIDE [Suspect]
     Dosage: UNK
  5. METHADONE HCL [Suspect]
     Dosage: UNK

REACTIONS (3)
  - TOXICITY TO VARIOUS AGENTS [None]
  - ACCIDENTAL OVERDOSE [None]
  - PULMONARY OEDEMA [None]
